FAERS Safety Report 5417916-X (Version None)
Quarter: 2007Q3

REPORT INFORMATION
  Report Type: 
  Country: None (occurrence: None)
  Receive Date: 20070817
  Receipt Date: 20070813
  Transmission Date: 20080115
  Serious: Yes (Hospitalization)
  Sender: FDA-Public Use
  Company Number: DE-BRISTOL-MYERS SQUIBB COMPANY-13876289

PATIENT
  Age: 68 Year
  Sex: Male

DRUGS (11)
  1. AMPHOTERICIN B [Suspect]
     Indication: ORAL CANDIDIASIS
  2. VERAPAMIL [Concomitant]
  3. RAMIPRIL [Concomitant]
  4. RANITIDINE [Concomitant]
  5. NOVALGIN [Concomitant]
  6. METFORMIN HCL [Concomitant]
  7. HALOPERIDOL [Concomitant]
  8. FUROSEMIDE [Concomitant]
  9. BISOPROLOL [Concomitant]
  10. ALLOPURINOL [Concomitant]
  11. DEXAMETHASONE 0.5MG TAB [Concomitant]

REACTIONS (1)
  - ACUTE GENERALISED EXANTHEMATOUS PUSTULOSIS [None]
